FAERS Safety Report 19270020 (Version 1)
Quarter: 2021Q2

REPORT INFORMATION
  Report Type: Spontaneous
  Country: CN (occurrence: CN)
  Receive Date: 20210518
  Receipt Date: 20210518
  Transmission Date: 20210717
  Serious: Yes (Other)
  Sender: FDA-Public Use
  Company Number: CN-PFIZER INC-2021517690

PATIENT
  Age: 99 Year
  Sex: Male
  Weight: 70 kg

DRUGS (2)
  1. DIFLUCAN [Suspect]
     Active Substance: FLUCONAZOLE
     Indication: FUNGAL INFECTION
  2. DIFLUCAN [Suspect]
     Active Substance: FLUCONAZOLE
     Indication: SYMPTOMATIC TREATMENT
     Dosage: 0.2 G, 1X/DAY
     Route: 041
     Dates: start: 20210403, end: 20210420

REACTIONS (1)
  - Drug-induced liver injury [Recovered/Resolved]

NARRATIVE: CASE EVENT DATE: 20210414
